FAERS Safety Report 9005491 (Version 1)
Quarter: 2013Q1

REPORT INFORMATION
  Report Type: Spontaneous
  Country: US (occurrence: US)
  Receive Date: 20130109
  Receipt Date: 20130109
  Transmission Date: 20140127
  Serious: Yes (Death)
  Sender: FDA-Public Use
  Company Number: US-PFIZER INC-2013005900

PATIENT
  Age: 38 Year
  Sex: Male

DRUGS (7)
  1. ZIPRASIDONE HCL [Suspect]
     Dosage: UNK
  2. BENZODIAZEPINE [Suspect]
     Dosage: UNK
  3. QUETIAPINE [Suspect]
     Dosage: UNK
  4. DULOXETINE [Suspect]
     Dosage: UNK
  5. DIPHENHYDRAMINE [Suspect]
     Dosage: UNK
  6. LAMOTRIGINE [Suspect]
     Dosage: UNK
  7. MIRTAZAPINE [Suspect]
     Dosage: UNK

REACTIONS (1)
  - Completed suicide [Fatal]
